FAERS Safety Report 18813685 (Version 3)
Quarter: 2023Q2

REPORT INFORMATION
  Report Type: Other
  Country: JP (occurrence: JP)
  Receive Date: 20210201
  Receipt Date: 20230411
  Transmission Date: 20230722
  Serious: Yes (Hospitalization)
  Sender: FDA-Public Use
  Company Number: JP-CHUGAI-A2021003349ROCHE

PATIENT
  Age: 65 Year
  Sex: Female
  Weight: 55 kg

DRUGS (10)
  1. TECENTRIQ [Suspect]
     Active Substance: ATEZOLIZUMAB
     Indication: Lung adenocarcinoma
     Dosage: MOST RECENT DOSE PRIOR TO AE 24/SEP/2020
     Route: 041
     Dates: start: 20200720, end: 20200924
  2. AVASTIN [Suspect]
     Active Substance: BEVACIZUMAB
     Indication: Lung adenocarcinoma
     Dosage: MOST RECENT DOSE PRIOR TO AE 24/SEP/2020
     Route: 042
     Dates: start: 20200720, end: 20200924
  3. PACLITAXEL [Concomitant]
     Active Substance: PACLITAXEL
     Indication: Lung adenocarcinoma
     Dosage: DOSAGE IS UNCERTAIN.
     Route: 041
     Dates: start: 20200720, end: 20200720
  4. PACLITAXEL [Concomitant]
     Active Substance: PACLITAXEL
     Dosage: WEIGHT LOSS
     Route: 041
     Dates: start: 20200813, end: 20200924
  5. CARBOPLATIN [Concomitant]
     Active Substance: CARBOPLATIN
     Indication: Lung adenocarcinoma
     Dosage: DOSAGE IS UNCERTAIN.
     Route: 041
     Dates: start: 20200720, end: 20200924
  6. CALONAL [Concomitant]
     Active Substance: ACETAMINOPHEN
     Dosage: DOSAGE IS UNCERTAIN.
     Route: 048
     Dates: start: 20200615
  7. CYMBALTA [Concomitant]
     Active Substance: DULOXETINE HYDROCHLORIDE
     Dosage: DOSAGE IS UNCERTAIN.
     Route: 048
     Dates: start: 20200727
  8. LANSOPRAZOLE [Concomitant]
     Active Substance: LANSOPRAZOLE
     Dosage: DOSAGE IS UNCERTAIN.
     Route: 048
     Dates: start: 20200726
  9. AMLODIPINE [Concomitant]
     Active Substance: AMLODIPINE BESYLATE
     Dosage: DOSAGE IS UNCERTAIN.
     Route: 048
     Dates: start: 20200903
  10. BELSOMRA [Concomitant]
     Active Substance: SUVOREXANT
     Dosage: DOSAGE IS UNCERTAIN.
     Route: 048
     Dates: start: 20200612

REACTIONS (3)
  - Cholangitis sclerosing [Recovering/Resolving]
  - Spinal compression fracture [Unknown]
  - Neutrophil count decreased [Unknown]

NARRATIVE: CASE EVENT DATE: 20200928
